FAERS Safety Report 17987861 (Version 3)
Quarter: 2021Q2

REPORT INFORMATION
  Report Type: Spontaneous
  Country: US (occurrence: US)
  Receive Date: 20200707
  Receipt Date: 20210616
  Transmission Date: 20210717
  Serious: Yes (Other)
  Sender: FDA-Public Use
  Company Number: US-GILEAD-2020-0478870

PATIENT
  Age: 30 Year
  Sex: Male
  Weight: 108.39 kg

DRUGS (21)
  1. ATRIPLA [Suspect]
     Active Substance: EFAVIRENZ\EMTRICITABINE\TENOFOVIR DISOPROXIL FUMARATE
     Indication: HIV INFECTION
     Dosage: UNK
     Route: 048
     Dates: start: 20080102, end: 20150104
  2. VASCEPA [Concomitant]
     Active Substance: ICOSAPENT ETHYL
  3. ATORVASTATIN [Concomitant]
     Active Substance: ATORVASTATIN
  4. AMLODIPINE [Concomitant]
     Active Substance: AMLODIPINE BESYLATE
  5. ACETAMINOPHEN. [Concomitant]
     Active Substance: ACETAMINOPHEN
  6. TRIUMEQ [Concomitant]
     Active Substance: ABACAVIR SULFATE\DOLUTEGRAVIR SODIUM\LAMIVUDINE
  7. HUMALOG [Concomitant]
     Active Substance: INSULIN LISPRO
  8. LOSARTAN. [Concomitant]
     Active Substance: LOSARTAN
  9. ASPIRIN (E.C.) [Concomitant]
     Active Substance: ASPIRIN
  10. TRIAMCINOLONE [Concomitant]
     Active Substance: TRIAMCINOLONE
  11. LAMIVUDINE. [Concomitant]
     Active Substance: LAMIVUDINE
  12. IBUPROFEN. [Concomitant]
     Active Substance: IBUPROFEN
  13. TIVICAY [Concomitant]
     Active Substance: DOLUTEGRAVIR SODIUM
  14. BACTRIM [Concomitant]
     Active Substance: SULFAMETHOXAZOLE\TRIMETHOPRIM
  15. PANTOPRAZOLE [Concomitant]
     Active Substance: PANTOPRAZOLE
  16. LEVEMIR [Concomitant]
     Active Substance: INSULIN DETEMIR
  17. CRESTOR [Concomitant]
     Active Substance: ROSUVASTATIN CALCIUM
  18. METOPROLOL SUCCINATE. [Concomitant]
     Active Substance: METOPROLOL SUCCINATE
  19. FLUOCINONIDE. [Concomitant]
     Active Substance: FLUOCINONIDE
  20. ATIVAN [Concomitant]
     Active Substance: LORAZEPAM
  21. TACROLIMUS. [Concomitant]
     Active Substance: TACROLIMUS

REACTIONS (12)
  - Pain [Unknown]
  - Emotional distress [Unknown]
  - Osteonecrosis [Unknown]
  - Bone loss [Unknown]
  - Bone density decreased [Unknown]
  - Multiple fractures [Not Recovered/Not Resolved]
  - Chronic kidney disease [Not Recovered/Not Resolved]
  - Renal failure [Not Recovered/Not Resolved]
  - Nephrotic syndrome [Unknown]
  - Tooth loss [Not Recovered/Not Resolved]
  - End stage renal disease [Not Recovered/Not Resolved]
  - Proteinuria [Not Recovered/Not Resolved]

NARRATIVE: CASE EVENT DATE: 20150313
